FAERS Safety Report 8111779 (Version 10)
Quarter: 2013Q2

REPORT INFORMATION
  Report Type: Spontaneous
  Country: US (occurrence: US)
  Receive Date: 20110829
  Receipt Date: 20130524
  Transmission Date: 20140414
  Serious: Yes (Hospitalization, Other)
  Sender: FDA-Public Use
  Company Number: US-PURDUE-USA-2011-0074104

PATIENT
  Age: 40 Year
  Sex: Male

DRUGS (28)
  1. OXYCONTIN TABLETS [Suspect]
     Indication: PAIN
     Dosage: UNK UNK, SEE TEXT
     Dates: start: 19990817, end: 20101122
  2. OXYCODONE HYDROCHLORIDE (SIMILAR TO NDA 20-553) [Suspect]
     Indication: PRODUCT USED FOR UNKNOWN INDICATION
     Dosage: UNK
     Dates: start: 199910, end: 20101122
  3. ALBUTEROL /00139501/ [Suspect]
     Indication: DRUG ABUSE
  4. AVINZA [Suspect]
     Indication: PRODUCT USED FOR UNKNOWN INDICATION
     Dosage: 100 MG, BID
  5. ADDERALL [Suspect]
     Indication: DRUG ABUSE
  6. ROXICODONE [Suspect]
     Indication: PRODUCT USED FOR UNKNOWN INDICATION
     Dosage: UNK
     Dates: start: 199910, end: 20101122
  7. EPHEDRINE [Suspect]
     Indication: DRUG ABUSE
  8. ETHANOL [Suspect]
     Indication: PRODUCT USED FOR UNKNOWN INDICATION
  9. PERCOCET /00867901/ [Suspect]
     Indication: PAIN
     Dosage: 7.5 MG, Q8H PRN
     Dates: start: 19990817
  10. PERCOCET /00867901/ [Suspect]
     Dosage: UNK UNK, Q4H PRN
  11. SEROQUEL [Suspect]
     Indication: INSOMNIA
     Dosage: UNK, HS
  12. FLEXERIL                           /00428402/ [Concomitant]
     Indication: PRODUCT USED FOR UNKNOWN INDICATION
     Dosage: 10 MG, HS
     Dates: start: 19990817
  13. FLEXERIL                           /00428402/ [Concomitant]
     Dosage: 20 MG, DAILY
  14. VIOXX [Concomitant]
     Indication: PRODUCT USED FOR UNKNOWN INDICATION
     Dosage: 50 MG, DAILY
     Dates: start: 19990817
  15. ACIPHEX [Concomitant]
     Indication: PRODUCT USED FOR UNKNOWN INDICATION
     Dosage: 20 MG, DAILY
  16. WELLBUTRIN [Concomitant]
     Indication: PRODUCT USED FOR UNKNOWN INDICATION
     Dosage: 150 MG, DAILY
  17. RELAFEN [Concomitant]
     Indication: PAIN
  18. NAPROSYN                           /00256201/ [Concomitant]
     Indication: PRODUCT USED FOR UNKNOWN INDICATION
     Dosage: 500 MG, BID
  19. YOHIMBINE [Concomitant]
     Indication: PRODUCT USED FOR UNKNOWN INDICATION
     Dosage: UNK, PRN
  20. ANDROSTENEDIONE [Concomitant]
     Indication: PRODUCT USED FOR UNKNOWN INDICATION
  21. ADVIL                              /00109201/ [Concomitant]
     Indication: PRODUCT USED FOR UNKNOWN INDICATION
  22. CLENBUTEROL [Concomitant]
     Indication: PRODUCT USED FOR UNKNOWN INDICATION
  23. ELAVIL                             /00002202/ [Concomitant]
     Indication: SLEEP DISORDER
  24. BACTRIM [Concomitant]
     Indication: PRODUCT USED FOR UNKNOWN INDICATION
  25. CYTOTEC [Concomitant]
     Indication: PRODUCT USED FOR UNKNOWN INDICATION
  26. NSAID^S [Concomitant]
     Indication: PRODUCT USED FOR UNKNOWN INDICATION
  27. TRAZODONE [Concomitant]
     Indication: PRODUCT USED FOR UNKNOWN INDICATION
  28. CLONIDINE [Concomitant]
     Indication: PRODUCT USED FOR UNKNOWN INDICATION

REACTIONS (54)
  - Accidental overdose [Unknown]
  - Overdose [Unknown]
  - Drug dependence [Unknown]
  - Substance abuse [Unknown]
  - Brain injury [Unknown]
  - Suicidal ideation [Unknown]
  - Respiratory arrest [Unknown]
  - Cyanosis [Unknown]
  - Loss of consciousness [Unknown]
  - Anxiety [Unknown]
  - Pain [Unknown]
  - Shock [Unknown]
  - Confusional state [Unknown]
  - Dizziness [Unknown]
  - Memory impairment [Unknown]
  - Injury [Unknown]
  - Mental impairment [Unknown]
  - Abulia [Unknown]
  - Impaired driving ability [Unknown]
  - Thinking abnormal [Unknown]
  - General physical health deterioration [Unknown]
  - Drug withdrawal syndrome [Unknown]
  - Cognitive disorder [Unknown]
  - Mental disorder [Unknown]
  - Emotional disorder [Unknown]
  - Impaired reasoning [Unknown]
  - Insomnia [Unknown]
  - Nightmare [Unknown]
  - Anger [Unknown]
  - Hostility [Unknown]
  - Muscle atrophy [Unknown]
  - Muscular weakness [Unknown]
  - Emotional distress [Unknown]
  - Panic disorder [Unknown]
  - Feeling of despair [Unknown]
  - Hyperhidrosis [Unknown]
  - Vomiting [Unknown]
  - Depressed mood [Unknown]
  - Polyuria [Unknown]
  - Pollakiuria [Unknown]
  - Decreased interest [Unknown]
  - Chest pain [Unknown]
  - Gastrooesophageal reflux disease [Unknown]
  - Musculoskeletal pain [Unknown]
  - Malaise [Unknown]
  - Blood pressure increased [Unknown]
  - Ear infection [Unknown]
  - Mass [Unknown]
  - Dysuria [Unknown]
  - Bladder discomfort [Unknown]
  - Nausea [Unknown]
  - Erectile dysfunction [Unknown]
  - Constipation [Unknown]
  - Groin pain [Unknown]
